FAERS Safety Report 26172715 (Version 1)
Quarter: 2025Q4

REPORT INFORMATION
  Report Type: Spontaneous
  Country: US (occurrence: US)
  Receive Date: 20251218
  Receipt Date: 20251218
  Transmission Date: 20260118
  Serious: No
  Sender: BRISTOL-MYERS SQUIBB COMPANY
  Company Number: US-BRISTOL-MYERS SQUIBB COMPANY-2025-169827

PATIENT
  Age: 41 Year
  Sex: Male

DRUGS (3)
  1. OPDIVO [Suspect]
     Active Substance: NIVOLUMAB
     Indication: Adenocarcinoma pancreas
     Route: 042
     Dates: start: 202410
  2. OPDIVO [Suspect]
     Active Substance: NIVOLUMAB
     Dosage: MAINTENANCE
     Route: 042
     Dates: start: 202501
  3. YERVOY [Suspect]
     Active Substance: IPILIMUMAB
     Indication: Adenocarcinoma pancreas
     Dates: start: 202410, end: 202501

REACTIONS (3)
  - Fatigue [Unknown]
  - Gastritis [Unknown]
  - Off label use [Unknown]
